FAERS Safety Report 8832459 (Version 1)
Quarter: 2012Q4

REPORT INFORMATION
  Report Type: 
  Country: DE (occurrence: None)
  Receive Date: 20121005
  Receipt Date: 20121005
  Transmission Date: 20130627
  Serious: Yes (Hospitalization, Congenital Anomaly, Other)
  Sender: FDA-Public Use
  Company Number: AUR-APL-2012-04266

PATIENT
  Sex: Male
  Weight: 3.4 kg

DRUGS (4)
  1. PAROXETINE [Suspect]
     Indication: DEPRESSION
     Route: 064
  2. CARBAMAZEPINE [Suspect]
     Indication: ALCOHOL WITHDRAWAL SYNDROME
     Route: 064
  3. DOXEPIN [Suspect]
     Indication: DEPRESSION
     Route: 064
     Dates: start: 201012, end: 20110221
  4. DISTRANEURIN [Suspect]
     Indication: ALCOHOL WITHDRAWAL SYNDROME
     Dosage: As required
     Route: 064

REACTIONS (5)
  - Maternal drugs affecting foetus [None]
  - Neonatal respiratory distress syndrome [None]
  - Atrial septal defect [None]
  - Ventricular septal defect [None]
  - Pulmonary valve stenosis congenital [None]
